FAERS Safety Report 21527680 (Version 1)
Quarter: 2022Q4

REPORT INFORMATION
  Report Type: Report from Study
  Country: GB (occurrence: None)
  Receive Date: 20221031
  Receipt Date: 20221031
  Transmission Date: 20230112
  Serious: Yes (Hospitalization)
  Sender: FDA-Public Use
  Company Number: GB-Merck Healthcare KGaA-9360098

PATIENT
  Sex: Female

DRUGS (1)
  1. SAIZEN [Suspect]
     Active Substance: SOMATROPIN
     Indication: Product used for unknown indication
     Dosage: 0.55 (UNIT UNSPECIFIED)
     Dates: start: 20220530

REACTIONS (4)
  - Vomiting [Unknown]
  - Headache [Unknown]
  - Intracranial pressure increased [Unknown]
  - Device issue [Unknown]
